FAERS Safety Report 6184456-2 (Version None)
Quarter: 2009Q2

REPORT INFORMATION
  Report Type: 
  Country: None (occurrence: None)
  Receive Date: 20090507
  Receipt Date: 20090507
  Transmission Date: 20091009
  Serious: Yes (Other)
  Sender: FDA-Public Use
  Company Number: None

PATIENT
  Age: 47 Year
  Sex: Female
  Weight: 125.2835 kg

DRUGS (10)
  1. PHENYTOIN SODIUM EXTENDED 100 MG (WOCKHARDT) [Suspect]
     Indication: EPILEPSY
     Dosage: 2 PO IN THE AM AND 200 AT HS
     Route: 048
     Dates: start: 20090407, end: 20090421
  2. SALINE NASAL SPRAY 0.65% SOLN (SALINE) [Concomitant]
  3. KLOR-CON 10 10 MEQ TBCR (POTASSIUM CHLORIDE) [Concomitant]
  4. MYCOLOG II 100000-0.1 U/GM% CREA (NYSTATIN-TRIAMCINOLONE) [Concomitant]
  5. RESTASIS 0.05 % EMUL (CYCLOSPORINE) [Concomitant]
  6. METANX 2.8-25-2 MG TABS (L-METHYLFOLATE-B6-B12) [Concomitant]
  7. B-12 1000 ING [Concomitant]
  8. APPLE CIDER VINEGAR PLUS TABS (APPLE CID VN-GRN TEA-BIT OR-CR) [Concomitant]
  9. ZYRTEC ALLERGY 10 MG TABS (CETIRIZINE HCL) [Concomitant]
  10. CYANOCOBALAMIN [Concomitant]

REACTIONS (4)
  - CONDITION AGGRAVATED [None]
  - CONVULSION [None]
  - FEELING ABNORMAL [None]
  - PRODUCT SUBSTITUTION ISSUE [None]
